FAERS Safety Report 9384450 (Version 1)
Quarter: 2013Q3

REPORT INFORMATION
  Report Type: Spontaneous
  Country: FR (occurrence: FR)
  Receive Date: 20130705
  Receipt Date: 20130705
  Transmission Date: 20140515
  Serious: Yes (Hospitalization)
  Sender: FDA-Public Use
  Company Number: FR-MERCK-1306FRA013614

PATIENT
  Age: 87 Year
  Sex: Female

DRUGS (8)
  1. SINEMET 100 MG / 10 MG COMPRIME SECABLE [Suspect]
     Indication: PARKINSON^S DISEASE
     Route: 048
  2. SINEMET 100 MG / 10 MG COMPRIME SECABLE [Suspect]
     Dosage: UNK
     Route: 048
     Dates: start: 20130512
  3. IMOVANE [Suspect]
     Indication: SLEEP DISORDER
     Route: 048
  4. SERESTA [Suspect]
     Indication: ANXIETY
     Route: 048
  5. ATACAND [Concomitant]
  6. GLUCOPHAGE [Concomitant]
  7. CARDENSIEL [Concomitant]
  8. FORLAX [Concomitant]

REACTIONS (1)
  - Disturbance in attention [Recovered/Resolved]
